FAERS Safety Report 8471442-2 (Version None)
Quarter: 2012Q2

REPORT INFORMATION
  Report Type: 
  Country: None (occurrence: None)
  Receive Date: 20120323
  Receipt Date: 20111208
  Transmission Date: 20120825
  Serious: Yes (Disabling)
  Sender: FDA-Public Use
  Company Number: 163-21880-11100284

PATIENT
  Age: 84 Year
  Sex: Female

DRUGS (6)
  1. AMBIEN [Concomitant]
  2. ZANTAC [Concomitant]
  3. SYNTHROID [Concomitant]
  4. REVLIMID [Suspect]
     Indication: LYMPHOPROLIFERATIVE DISORDER
     Dosage: 10 MG, 1 IN 1 D, PO
     Route: 048
     Dates: start: 20110329
  5. CLARITIN [Concomitant]
  6. REVLIMID [Suspect]

REACTIONS (2)
  - RASH PRURITIC [None]
  - FATIGUE [None]
